FAERS Safety Report 7725932-8 (Version None)
Quarter: 2011Q3

REPORT INFORMATION
  Report Type: 
  Country: None (occurrence: None)
  Receive Date: 20110902
  Receipt Date: 20110824
  Transmission Date: 20111222
  Serious: Yes (Hospitalization)
  Sender: FDA-Public Use
  Company Number: CA-JNJFOC-20110810611

PATIENT
  Sex: Female
  Weight: 68.04 kg

DRUGS (6)
  1. ACCUPRIL [Concomitant]
  2. PANTOPRAZOLE SODIUM [Concomitant]
  3. CLONIDINE [Concomitant]
  4. STELARA [Suspect]
     Indication: PSORIASIS
     Route: 058
     Dates: start: 20100816
  5. ATIVAN [Concomitant]
  6. PAXIL [Concomitant]

REACTIONS (3)
  - BLOOD POTASSIUM DECREASED [None]
  - KIDNEY INFECTION [None]
  - FUNGAL INFECTION [None]
